FAERS Safety Report 19666294 (Version 2)
Quarter: 2021Q4

REPORT INFORMATION
  Report Type: Report from Study
  Country: US (occurrence: US)
  Receive Date: 20210806
  Receipt Date: 20211029
  Transmission Date: 20220303
  Serious: Yes (Hospitalization, Other)
  Sender: FDA-Public Use
  Company Number: US-BIOVITRUM-2020US3960

PATIENT
  Sex: Female

DRUGS (1)
  1. KINERET [Suspect]
     Active Substance: ANAKINRA
     Indication: Rheumatoid arthritis
     Route: 058
     Dates: start: 20180815

REACTIONS (15)
  - Haemorrhage intracranial [Unknown]
  - Secondary immunodeficiency [Unknown]
  - Systemic lupus erythematosus [Unknown]
  - Autoimmune hepatitis [Unknown]
  - Condition aggravated [Unknown]
  - Seizure [Unknown]
  - Osteoporosis [Unknown]
  - Tremor [Unknown]
  - Infection [Unknown]
  - C-reactive protein abnormal [Unknown]
  - Red blood cell sedimentation rate abnormal [Unknown]
  - Gamma-glutamyltransferase abnormal [Unknown]
  - Laboratory test abnormal [Unknown]
  - Product dose omission issue [Unknown]
  - Off label use [Unknown]
